FAERS Safety Report 9240142 (Version 1)
Quarter: 2013Q2

REPORT INFORMATION
  Report Type: Spontaneous
  Country: GB (occurrence: None)
  Receive Date: 20130417
  Receipt Date: 20130417
  Transmission Date: 20140414
  Serious: Yes (Other)
  Sender: FDA-Public Use
  Company Number: 1672883

PATIENT
  Age: 16 Year
  Sex: Male

DRUGS (11)
  1. ATRACURIUM BESILATE [Suspect]
  2. (PROPOFOL) [Suspect]
  3. FENTANYL [Suspect]
  4. NITROUS OXIDE [Suspect]
     Indication: MAINTENANCE OF ANAESTHESIA
     Route: 055
  5. SEVOFLURANE [Suspect]
     Indication: MAINTENANCE OF ANAESTHESIA
     Route: 055
  6. OXYGEN [Suspect]
     Indication: MAINTENANCE OF ANAESTHESIA
     Route: 055
  7. NEOSTIGMINE [Suspect]
  8. GLYCOPYRROLATE [Suspect]
  9. EPINEPHRINE [Concomitant]
  10. PHENYTOIN [Concomitant]
  11. UNSPECIFIED INGREDIENT [Concomitant]

REACTIONS (14)
  - Pulmonary oedema [None]
  - Hypoxia [None]
  - Laryngospasm [None]
  - Respiratory distress [None]
  - Pulse absent [None]
  - Sinus tachycardia [None]
  - Hypertension [None]
  - Posturing [None]
  - Bundle branch block right [None]
  - Electrocardiogram ST segment abnormal [None]
  - Metabolic acidosis [None]
  - Low cardiac output syndrome [None]
  - Confusional state [None]
  - Brugada syndrome [None]
